FAERS Safety Report 10284380 (Version 1)
Quarter: 2014Q3

REPORT INFORMATION
  Report Type: Spontaneous
  Country: US (occurrence: US)
  Receive Date: 20140708
  Receipt Date: 20140708
  Transmission Date: 20150326
  Serious: Yes (Other)
  Sender: FDA-Public Use
  Company Number: US-PFIZER INC-2014188464

PATIENT
  Age: 61 Year
  Sex: Female
  Weight: 99.77 kg

DRUGS (6)
  1. LIPITOR [Concomitant]
     Active Substance: ATORVASTATIN CALCIUM
     Indication: BLOOD CHOLESTEROL INCREASED
     Dosage: 20 MG, 1X/DAY
  2. EFFEXOR [Suspect]
     Active Substance: VENLAFAXINE HYDROCHLORIDE
     Dosage: UNK
     Route: 048
     Dates: start: 2014, end: 20140611
  3. JANUVIA [Concomitant]
     Active Substance: SITAGLIPTIN PHOSPHATE
     Indication: DIABETES MELLITUS
     Dosage: 100 MG, 1X/DAY (IN MORNING)
  4. EFFEXOR [Suspect]
     Active Substance: VENLAFAXINE HYDROCHLORIDE
     Indication: DEPRESSION
     Dosage: 150 MG, 1X/DAY
     Route: 048
     Dates: start: 201401, end: 2014
  5. METFORMIN [Concomitant]
     Active Substance: METFORMIN HYDROCHLORIDE
     Indication: DIABETES MELLITUS
     Dosage: 1000 MG, 2X/DAY (BY TAKING TWO 500MG IN MORNING AND TWO 500MG AT NIGHT)
  6. LANTUS SOLOSTAR [Concomitant]
     Active Substance: INSULIN GLARGINE
     Dosage: 50 IU, 1X/DAY

REACTIONS (17)
  - Constipation [Unknown]
  - Brain injury [Unknown]
  - Feeling abnormal [Unknown]
  - Drug withdrawal syndrome [Unknown]
  - Diarrhoea [Unknown]
  - Nausea [Unknown]
  - Confusional state [Unknown]
  - Crying [Unknown]
  - Mental impairment [Unknown]
  - Blood glucose increased [Unknown]
  - Paraesthesia [Unknown]
  - Head discomfort [Unknown]
  - Drug dependence [Unknown]
  - Hyperhidrosis [Unknown]
  - Dizziness [Unknown]
  - Nervous system disorder [Unknown]
  - Coordination abnormal [Unknown]

NARRATIVE: CASE EVENT DATE: 2014
